FAERS Safety Report 24424841 (Version 1)
Quarter: 2024Q4

REPORT INFORMATION
  Report Type: Spontaneous
  Country: US (occurrence: US)
  Receive Date: 20241010
  Receipt Date: 20241010
  Transmission Date: 20250115
  Serious: Yes (Hospitalization, Other)
  Sender: DR REDDYS
  Company Number: US-DRL-USA-LIT/USA/24/0014802

PATIENT
  Age: 47 Year
  Sex: Male

DRUGS (7)
  1. DAPTOMYCIN [Suspect]
     Active Substance: DAPTOMYCIN
     Indication: Staphylococcal infection
  2. DAPTOMYCIN [Suspect]
     Active Substance: DAPTOMYCIN
     Indication: Pneumonia
  3. HEPARIN [Suspect]
     Active Substance: HEPARIN SODIUM
     Indication: Lemierre syndrome
     Route: 042
  4. VANCOMYCIN [Concomitant]
     Active Substance: VANCOMYCIN
     Indication: Staphylococcal infection
  5. VANCOMYCIN [Concomitant]
     Active Substance: VANCOMYCIN
     Indication: Pneumonia
  6. CEFTAROLINE [Concomitant]
     Active Substance: CEFTAROLINE
     Indication: Staphylococcal infection
  7. CEFTAROLINE [Concomitant]
     Active Substance: CEFTAROLINE
     Indication: Pneumonia

REACTIONS (4)
  - Drug ineffective for unapproved indication [Unknown]
  - Condition aggravated [Recovering/Resolving]
  - Pleural effusion [Recovering/Resolving]
  - Drug effective for unapproved indication [Unknown]
